FAERS Safety Report 6264285-1 (Version None)
Quarter: 2009Q3

REPORT INFORMATION
  Report Type: 
  Country: None (occurrence: None)
  Receive Date: 20090710
  Receipt Date: 20090708
  Transmission Date: 20100115
  Serious: Yes (Death)
  Sender: FDA-Public Use
  Company Number: JP-BAYER-200911531BYL

PATIENT
  Age: 73 Year
  Sex: Female
  Weight: 41 kg

DRUGS (4)
  1. NEXAVAR [Suspect]
     Indication: RENAL CELL CARCINOMA STAGE IV
     Dosage: TOTAL DAILY DOSE: 800 MG  UNIT DOSE: 200 MG
     Route: 048
     Dates: start: 20090210, end: 20090225
  2. NEXAVAR [Suspect]
     Dosage: TOTAL DAILY DOSE: 400 MG  UNIT DOSE: 200 MG
     Route: 048
     Dates: start: 20090226, end: 20090505
  3. OIF [Concomitant]
     Route: 030
     Dates: start: 20090206
  4. MAGMITT [Concomitant]
     Route: 048
     Dates: start: 20090210

REACTIONS (3)
  - DIARRHOEA [None]
  - PNEUMONIA [None]
  - RASH [None]
